FAERS Safety Report 6508597-2 (Version None)
Quarter: 2009Q4

REPORT INFORMATION
  Report Type: 
  Country: None (occurrence: None)
  Receive Date: 20091221
  Receipt Date: 20091215
  Transmission Date: 20100525
  Serious: Yes (Hospitalization)
  Sender: FDA-Public Use
  Company Number: US-GILEAD-2009-0026031

PATIENT
  Sex: Male

DRUGS (19)
  1. LETAIRIS [Suspect]
     Indication: PULMONARY ARTERIAL HYPERTENSION
     Route: 048
     Dates: start: 20091005
  2. SIMVASTATIN [Concomitant]
  3. ATENOLOL [Concomitant]
  4. LISINOPRIL [Concomitant]
  5. NIASPAN [Concomitant]
  6. FUROSEMIDE [Concomitant]
  7. METFORMIN HCL [Concomitant]
  8. ILETIN II PORK NPH [Concomitant]
  9. SINGULAIR [Concomitant]
  10. ASMANEX TWIST [Concomitant]
  11. FLUTICASONE PROP [Concomitant]
  12. ALBUTEROL [Concomitant]
  13. IPRATROPIUM [Concomitant]
  14. CLARITIN-D [Concomitant]
  15. ZOLPIDEM TARTRATE [Concomitant]
  16. FINASTERIDE [Concomitant]
  17. OXYCODONE [Concomitant]
  18. CHONDROITIN SULF [Concomitant]
  19. ADVANCED CALCIUM [Concomitant]

REACTIONS (1)
  - ANGINA PECTORIS [None]
